FAERS Safety Report 20574666 (Version 1)
Quarter: 2022Q1

REPORT INFORMATION
  Report Type: Spontaneous
  Country: BR (occurrence: BR)
  Receive Date: 20220309
  Receipt Date: 20220309
  Transmission Date: 20220424
  Serious: Yes (Hospitalization)
  Sender: FDA-Public Use
  Company Number: BR-STRIDES ARCOLAB LIMITED-2022SP002281

PATIENT
  Age: 55 Year
  Sex: Female

DRUGS (3)
  1. TENOFOVIR DISOPROXIL FUMARATE [Suspect]
     Active Substance: TENOFOVIR DISOPROXIL FUMARATE
     Indication: HIV infection
     Dosage: UNK, FOR PREVIOUS 2 YEARS
     Route: 065
  2. ZIDOVUDINE [Concomitant]
     Active Substance: ZIDOVUDINE
     Indication: HIV infection
     Dosage: UNK
     Route: 065
  3. LAMIVUDINE [Concomitant]
     Active Substance: LAMIVUDINE
     Indication: HIV infection
     Dosage: UNK
     Route: 065

REACTIONS (7)
  - Vitamin D deficiency [Unknown]
  - Hyperparathyroidism secondary [Recovered/Resolved]
  - Acute kidney injury [Unknown]
  - Fanconi syndrome [Unknown]
  - Bone density decreased [Unknown]
  - Fracture [Unknown]
  - Chronic kidney disease [Not Recovered/Not Resolved]
